FAERS Safety Report 9331545 (Version 4)
Quarter: 2014Q1

REPORT INFORMATION
  Report Type: Spontaneous
  Country: US (occurrence: None)
  Receive Date: 20130603
  Receipt Date: 20140304
  Transmission Date: 20141002
  Serious: Yes (Death, Hospitalization, Other)
  Sender: FDA-Public Use
  Company Number: AUR-APL-2013-04424

PATIENT
  Age: 65 Year
  Sex: Male

DRUGS (3)
  1. CLOPIDOGREL [Suspect]
     Indication: MYOCARDIAL INFARCTION
     Dosage: 150 MG, 1 D
     Dates: start: 200711, end: 201112
  2. PRASUGREL [Suspect]
     Indication: MYOCARDIAL INFARCTION
     Dosage: (10 MG , 1 D, UNKNOWN
     Dates: start: 20120101
  3. ACETYLSALICYCLIC ACID (ACETYLSALICYLIC ACID) [Concomitant]

REACTIONS (19)
  - Off label use [None]
  - Cough [None]
  - Sinusitis [None]
  - Pneumonia [None]
  - Contusion [None]
  - Dizziness [None]
  - Confusional state [None]
  - Dyspnoea [None]
  - Headache [None]
  - Asthenia [None]
  - Petechiae [None]
  - Urinary tract infection enterococcal [None]
  - Sepsis [None]
  - Systemic inflammatory response syndrome [None]
  - Respiratory failure [None]
  - Hepatic failure [None]
  - Renal failure [None]
  - Ammonia increased [None]
  - Blindness [None]
